FAERS Safety Report 7718270-0 (Version None)
Quarter: 2011Q3

REPORT INFORMATION
  Report Type: 
  Country: None (occurrence: None)
  Receive Date: 20110830
  Receipt Date: 20110818
  Transmission Date: 20111222
  Serious: Yes (Other)
  Sender: FDA-Public Use
  Company Number: PHHY2010CA68887

PATIENT
  Sex: Female

DRUGS (3)
  1. CALCIUM D SANDOZ [Concomitant]
     Dosage: 400 MG, UNK
  2. ZOLEDRONOC ACID [Suspect]
     Indication: OSTEOPOROSIS
     Dosage: UNK UKN, UNK
     Route: 042
     Dates: start: 20100913
  3. NORVASC [Concomitant]
     Dosage: 5 MG, UNK

REACTIONS (12)
  - MUSCLE SPASMS [None]
  - NAUSEA [None]
  - SWELLING FACE [None]
  - PYREXIA [None]
  - HOT FLUSH [None]
  - FATIGUE [None]
  - ASTHMA [None]
  - INFLUENZA LIKE ILLNESS [None]
  - PARAESTHESIA [None]
  - CHILLS [None]
  - OEDEMA PERIPHERAL [None]
  - HEADACHE [None]
